FAERS Safety Report 8094205-9 (Version None)
Quarter: 2012Q1

REPORT INFORMATION
  Report Type: 
  Country: None (occurrence: None)
  Receive Date: 20120131
  Receipt Date: 20120112
  Transmission Date: 20120608
  Serious: Yes (Hospitalization)
  Sender: FDA-Public Use
  Company Number: IN-US-EMD SERONO, INC.-7105974

PATIENT
  Age: 24 Year
  Sex: Female

DRUGS (4)
  1. KRIMSON 35 (ESTRADIOL AND CYPROPTERONE ACETATE) [Concomitant]
     Indication: PRODUCT USED FOR UNKNOWN INDICATION
  2. CLOMIPHENE CITRATE [Suspect]
     Indication: OVULATION INDUCTION
  3. METFORMIN HCL [Suspect]
     Indication: POLYCYSTIC OVARIES
  4. CLOMIPHENE CITRATE [Suspect]

REACTIONS (3)
  - FOETAL EXPOSURE DURING PREGNANCY [None]
  - RUPTURED ECTOPIC PREGNANCY [None]
  - OFF LABEL USE [None]
